FAERS Safety Report 14690999 (Version 1)
Quarter: 2018Q1

REPORT INFORMATION
  Report Type: Spontaneous
  Country: US (occurrence: US)
  Receive Date: 20180328
  Receipt Date: 20180328
  Transmission Date: 20180509
  Serious: No
  Sender: FDA-Public Use
  Company Number: US-MYLANLABS-2018M1015093

PATIENT
  Age: 50 Year
  Sex: Male

DRUGS (1)
  1. GLATIRAMER [Suspect]
     Active Substance: GLATIRAMER
     Indication: MULTIPLE SCLEROSIS
     Dosage: 40 MG, Q3W
     Route: 058
     Dates: start: 20180223

REACTIONS (6)
  - Erythema [Unknown]
  - Injection site pain [Not Recovered/Not Resolved]
  - Burning sensation [Unknown]
  - Rash [Unknown]
  - Chapped lips [Unknown]
  - Feeling hot [Unknown]

NARRATIVE: CASE EVENT DATE: 201802
